FAERS Safety Report 7942694-X (Version None)
Quarter: 2011Q4

REPORT INFORMATION
  Report Type: 
  Country: None (occurrence: None)
  Receive Date: 20111122
  Receipt Date: 20110826
  Transmission Date: 20120403
  Serious: Yes (Other)
  Sender: FDA-Public Use
  Company Number: PHEH2011US01126

PATIENT
  Age: 36 Year
  Sex: Female

DRUGS (2)
  1. PROZAC [Concomitant]
  2. GILENYA [Suspect]
     Indication: RELAPSING-REMITTING MULTIPLE SCLEROSIS
     Dosage: 0.5 MG, QD, ORAL
     Route: 048
     Dates: start: 20110328

REACTIONS (3)
  - HERPES ZOSTER [None]
  - RASH [None]
  - SKIN LESION [None]
